FAERS Safety Report 5230465-7 (Version None)
Quarter: 2007Q1

REPORT INFORMATION
  Report Type: 
  Country: None (occurrence: None)
  Receive Date: 20070206
  Receipt Date: 20070126
  Transmission Date: 20070707
  Serious: Yes (Hospitalization)
  Sender: FDA-Public Use
  Company Number: US-ELI_LILLY_AND_COMPANY-US200612002777

PATIENT
  Age: 69 Year
  Sex: Female

DRUGS (5)
  1. FORTEO [Suspect]
     Indication: OSTEOPOROSIS
     Dosage: UNK, UNK
     Dates: start: 20060401, end: 20060701
  2. FORTEO [Suspect]
     Dates: start: 20060801
  3. BACLOFEN [Concomitant]
     Indication: SPINAL CORD DISORDER
  4. GABAPENTIN [Concomitant]
     Indication: BONE PAIN
  5. COUMADIN [Concomitant]
     Indication: CARDIAC VALVE DISEASE

REACTIONS (7)
  - ALOPECIA [None]
  - BALANCE DISORDER [None]
  - CONTUSION [None]
  - FALL [None]
  - FOOT FRACTURE [None]
  - LIMB INJURY [None]
  - TOE DEFORMITY [None]
